FAERS Safety Report 4609955-3 (Version None)
Quarter: 2005Q1

REPORT INFORMATION
  Report Type: 
  Country: None (occurrence: None)
  Receive Date: 20050316
  Receipt Date: 20050304
  Transmission Date: 20050727
  Serious: Yes (Hospitalization)
  Sender: FDA-Public Use
  Company Number: IT-BRISTOL-MYERS SQUIBB COMPANY-12891354

PATIENT
  Age: 83 Year
  Sex: Male

DRUGS (2)
  1. CETUXIMAB [Suspect]
     Indication: COLORECTAL CANCER
     Dosage: MOST RECENT CETUXIMAB INFUSION ADMINISTERED ON 23-FEB-2005 (21ST).
     Route: 041
     Dates: start: 20040927, end: 20050223
  2. IRINOTECAN [Suspect]
     Indication: COLORECTAL CANCER
     Dosage: MOST RECENT IRINOTECAN INFUSION ADMINISTERED ON 09-FEB-2005 (10TH).
     Route: 042
     Dates: start: 20040927, end: 20050209

REACTIONS (1)
  - MYOCARDIAL INFARCTION [None]
